FAERS Safety Report 19199543 (Version 1)
Quarter: 2021Q2

REPORT INFORMATION
  Report Type: Spontaneous
  Country: ES (occurrence: ES)
  Receive Date: 20210429
  Receipt Date: 20210429
  Transmission Date: 20210717
  Serious: Yes (Other)
  Sender: FDA-Public Use
  Company Number: ES-B.I. PHARMACEUTICALS,INC./RIDGEFIELD-2021-BI-099235

PATIENT
  Age: 48 Year
  Sex: Male

DRUGS (3)
  1. MIRAPEXIN [Suspect]
     Active Substance: PRAMIPEXOLE
  2. MIRAPEXIN [Suspect]
     Active Substance: PRAMIPEXOLE
  3. MIRAPEXIN [Suspect]
     Active Substance: PRAMIPEXOLE
     Indication: RESTLESS LEGS SYNDROME

REACTIONS (3)
  - Restless legs syndrome [Unknown]
  - Intentional product misuse [Unknown]
  - Sleep apnoea syndrome [Recovering/Resolving]
